FAERS Safety Report 12788054 (Version 1)
Quarter: 2016Q3

REPORT INFORMATION
  Report Type: Report from Study
  Country: US (occurrence: US)
  Receive Date: 20160928
  Receipt Date: 20160928
  Transmission Date: 20161109
  Serious: Yes (Other)
  Sender: FDA-Public Use
  Company Number: US-ROCHE-1834962

PATIENT
  Age: 68 Year
  Sex: Female
  Weight: 60.3 kg

DRUGS (2)
  1. IXABEPILONE [Suspect]
     Active Substance: IXABEPILONE
     Indication: ENDOMETRIAL CANCER
     Dosage: OVER 1 HOUR ON DAY 1; 13/JUN/2011;  07/JUL/2011;  28/JUL/2011;  01/SEP/2011 AND 28/SEP/2011; LAST TR
     Route: 042
     Dates: start: 20110613
  2. BEVACIZUMAB [Suspect]
     Active Substance: BEVACIZUMAB
     Indication: ENDOMETRIAL CANCER
     Dosage: OVER 30-90 MINUTES ON DAY 1; 13/JUN/2011;  07/JUL/2011;  28/JUL/2011;  01/SEP/2011, 28/SEP/2011;  19
     Route: 042
     Dates: start: 20110613

REACTIONS (3)
  - Anaemia [Unknown]
  - Hypertension [Unknown]
  - Proteinuria [Unknown]
